FAERS Safety Report 4681643-7 (Version None)
Quarter: 2005Q2

REPORT INFORMATION
  Report Type: 
  Country: None (occurrence: None)
  Receive Date: 20050602
  Receipt Date: 20050519
  Transmission Date: 20051028
  Serious: Yes (Other)
  Sender: FDA-Public Use
  Company Number: 2005-128179-NL

PATIENT
  Sex: Female

DRUGS (2)
  1. HUMEGON [Suspect]
     Indication: INFERTILITY
  2. CLOMIPHENE CITRATE [Suspect]

REACTIONS (1)
  - BREAST CANCER FEMALE [None]
